FAERS Safety Report 4654764-2 (Version None)
Quarter: 2005Q2

REPORT INFORMATION
  Report Type: 
  Country: None (occurrence: None)
  Receive Date: 20050504
  Receipt Date: 20050421
  Transmission Date: 20051028
  Serious: Yes (Hospitalization, Disabling)
  Sender: FDA-Public Use
  Company Number: 2005034362

PATIENT
  Age: 79 Year
  Sex: Male
  Weight: 71 kg

DRUGS (5)
  1. IRINOTECAN HCL [Suspect]
     Indication: METASTATIC NEOPLASM
     Dosage: 700 MG INTRAVENOUS
     Route: 042
     Dates: start: 20040816, end: 20041129
  2. BETA-ACETYLDIGOXIN [Concomitant]
  3. METOPROLOL TARTRATE [Concomitant]
  4. FUROSEMIDE [Concomitant]
  5. ZOLPIDEM [Concomitant]

REACTIONS (10)
  - ASTHENIA [None]
  - BLOOD BRAIN BARRIER DEFECT [None]
  - CERVICAL SPINAL STENOSIS [None]
  - COLON CANCER METASTATIC [None]
  - COORDINATION ABNORMAL [None]
  - GAIT DISTURBANCE [None]
  - GUILLAIN-BARRE SYNDROME [None]
  - HYPOAESTHESIA [None]
  - POLYNEUROPATHY IN MALIGNANT DISEASE [None]
  - PROTEIN TOTAL INCREASED [None]
